FAERS Safety Report 13367276 (Version 3)
Quarter: 2017Q2

REPORT INFORMATION
  Report Type: Spontaneous
  Country: DE (occurrence: DE)
  Receive Date: 20170324
  Receipt Date: 20170519
  Transmission Date: 20170830
  Serious: Yes (Death, Hospitalization)
  Sender: FDA-Public Use
  Company Number: DE-ACTELION-A-CH2017-151378

PATIENT
  Age: 85 Year
  Sex: Female

DRUGS (13)
  1. OPSUMIT [Concomitant]
     Active Substance: MACITENTAN
     Dosage: 10 MG, OD
     Route: 048
  2. SPIRONOLACTON [Concomitant]
     Active Substance: SPIRONOLACTONE
     Dosage: 25 MG, OD
     Route: 048
  3. UPTRAVI [Suspect]
     Active Substance: SELEXIPAG
     Indication: PULMONARY ARTERIAL HYPERTENSION
     Dosage: 400 ?G, BID
     Route: 048
     Dates: start: 20170201, end: 20170315
  4. BISOPROLOL [Concomitant]
     Active Substance: BISOPROLOL
     Dosage: 2.5 MG, BID
     Route: 048
  5. BIFITERAL [Concomitant]
     Active Substance: LACTULOSE
     Dosage: 6.67 GR, PRN
     Route: 048
  6. MARCUMAR [Concomitant]
     Active Substance: PHENPROCOUMON
     Dosage: UNK MG, PRN
     Route: 048
  7. VENTAVIS [Concomitant]
     Active Substance: ILOPROST
     Dosage: 10 ?G, UNK
     Route: 055
  8. TOREM [Concomitant]
     Active Substance: TORSEMIDE
     Dosage: 100 MG, BID
     Route: 048
  9. KALINOR-RETARD P [Concomitant]
     Dosage: 40 MMOL, OD
     Route: 048
  10. SILDENAFIL. [Concomitant]
     Active Substance: SILDENAFIL
     Dosage: 40 MG, TID
     Route: 048
  11. UPTRAVI [Suspect]
     Active Substance: SELEXIPAG
     Dosage: UNK
     Route: 048
     Dates: end: 20170317
  12. ADENURIC [Concomitant]
     Active Substance: FEBUXOSTAT
     Dosage: 40 MG, OD
     Route: 048
  13. AQUAPHOR [Concomitant]
     Active Substance: PETROLATUM
     Dosage: 20 MG, OD
     Route: 048

REACTIONS (3)
  - Acute kidney injury [Recovered/Resolved]
  - Right ventricular failure [Fatal]
  - Palliative care [Unknown]
